FAERS Safety Report 17744500 (Version 2)
Quarter: 2020Q3

REPORT INFORMATION
  Report Type: Spontaneous
  Country: US (occurrence: US)
  Receive Date: 20200505
  Receipt Date: 20200701
  Transmission Date: 20201102
  Serious: Yes (Hospitalization, Other)
  Sender: FDA-Public Use
  Company Number: US-AEGERION PHARMACEUTICAL, INC-AEGR004803

PATIENT
  Age: 17 Year
  Sex: Female

DRUGS (7)
  1. MYALEPT [Suspect]
     Active Substance: METRELEPTIN
     Dosage: 4 MG, BID
     Route: 058
     Dates: start: 20140412
  2. LISINOPRIL. [Concomitant]
     Active Substance: LISINOPRIL
     Indication: PRODUCT USED FOR UNKNOWN INDICATION
  3. MYALEPT [Suspect]
     Active Substance: METRELEPTIN
     Indication: CONGENITAL GENERALISED LIPODYSTROPHY
     Dosage: 4 MG, BID
     Route: 058
     Dates: start: 2008
  4. RIOMET                             /00082701/ [Concomitant]
     Indication: PRODUCT USED FOR UNKNOWN INDICATION
  5. HUMULIN R [Concomitant]
     Active Substance: INSULIN HUMAN
     Indication: PRODUCT USED FOR UNKNOWN INDICATION
  6. INVOKANA [Concomitant]
     Active Substance: CANAGLIFLOZIN
     Indication: PRODUCT USED FOR UNKNOWN INDICATION
  7. VITAMIN D3 [Concomitant]
     Active Substance: CHOLECALCIFEROL
     Indication: PRODUCT USED FOR UNKNOWN INDICATION

REACTIONS (4)
  - Ketonuria [Recovered/Resolved]
  - Product dose omission issue [Unknown]
  - Hypersomnia [Not Recovered/Not Resolved]
  - Type 2 diabetes mellitus [Recovered/Resolved]

NARRATIVE: CASE EVENT DATE: 202002
